FAERS Safety Report 5234335-X (Version None)
Quarter: 2007Q1

REPORT INFORMATION
  Report Type: 
  Country: None (occurrence: None)
  Receive Date: 20070207
  Receipt Date: 20070125
  Transmission Date: 20070707
  Serious: Yes (Hospitalization)
  Sender: FDA-Public Use
  Company Number: 07-008

PATIENT
  Age: 54 Year
  Sex: Male
  Weight: 77.1115 kg

DRUGS (1)
  1. IBUPROFEN [Suspect]
     Indication: ARTHRALGIA
     Dosage: 2 IN AM - 2 IN PM
     Dates: start: 20070118, end: 20070121

REACTIONS (6)
  - ANAEMIA [None]
  - ASTHENIA [None]
  - CONDITION AGGRAVATED [None]
  - FAECES DISCOLOURED [None]
  - GASTROINTESTINAL ULCER [None]
  - PHARMACEUTICAL PRODUCT COMPLAINT [None]
